FAERS Safety Report 9946185 (Version 2)
Quarter: 2014Q1

REPORT INFORMATION
  Report Type: Spontaneous
  Country: US (occurrence: US)
  Receive Date: 20140303
  Receipt Date: 20140303
  Transmission Date: 20141002
  Serious: No
  Sender: FDA-Public Use
  Company Number: US-AMGEN-USASP2013070016

PATIENT
  Age: 54 Year
  Sex: Female
  Weight: 105.22 kg

DRUGS (1)
  1. ENBREL [Suspect]
     Indication: RHEUMATOID ARTHRITIS
     Dosage: 50 MG, Q2WK
     Route: 058
     Dates: start: 20130709, end: 20130730

REACTIONS (2)
  - Asthenia [Recovered/Resolved]
  - Chest pain [Recovered/Resolved]
